FAERS Safety Report 5034259-7 (Version None)
Quarter: 2006Q2

REPORT INFORMATION
  Report Type: 
  Country: None (occurrence: None)
  Receive Date: 20060518
  Receipt Date: 20050329
  Transmission Date: 20061013
  Serious: Yes (Other)
  Sender: FDA-Public Use
  Company Number: 2005051197

PATIENT
  Age: 36 Year
  Sex: Female
  Weight: 85.2762 kg

DRUGS (1)
  1. DEPO-PROVERA [Suspect]
     Dosage: (150 MG, INITIAL AND MOST RECENT INJECTION), INTRAMUSCULAR
     Route: 030
     Dates: start: 20050317

REACTIONS (2)
  - ANXIETY [None]
  - SUICIDAL IDEATION [None]
